FAERS Safety Report 10071295 (Version 5)
Quarter: 2016Q4

REPORT INFORMATION
  Report Type: Spontaneous
  Country: US (occurrence: US)
  Receive Date: 20140410
  Receipt Date: 20161130
  Transmission Date: 20170206
  Serious: Yes (Death, Hospitalization, Disabling, Other)
  Sender: FDA-Public Use
  Company Number: US-009507513-1404USA005938

PATIENT
  Sex: Male
  Weight: 108.84 kg

DRUGS (7)
  1. JANUVIA [Suspect]
     Active Substance: SITAGLIPTIN PHOSPHATE
     Indication: TYPE 2 DIABETES MELLITUS
     Dosage: 100 MG, QD
     Route: 048
     Dates: start: 2006, end: 20090508
  2. DIOVAN [Concomitant]
     Active Substance: VALSARTAN
     Dosage: 320/25MG QD`
  3. JANUMET [Suspect]
     Active Substance: METFORMIN HYDROCHLORIDE\SITAGLIPTIN PHOSPHATE
     Indication: TYPE 2 DIABETES MELLITUS
     Dosage: UNK
     Route: 048
  4. METFORMIN [Concomitant]
     Active Substance: METFORMIN HYDROCHLORIDE
     Dosage: 1000 MG, BID
  5. AVANDIA [Concomitant]
     Active Substance: ROSIGLITAZONE MALEATE
     Dosage: 4 MG, BID
  6. GLIMEPIRIDE. [Concomitant]
     Active Substance: GLIMEPIRIDE
     Indication: PRODUCT USED FOR UNKNOWN INDICATION
     Dosage: 4 MG, BID
     Route: 048
  7. LEVEMIR [Concomitant]
     Active Substance: INSULIN DETEMIR
     Dosage: 30 IU, HS
     Route: 058

REACTIONS (55)
  - Metastases to lung [Unknown]
  - Pyrexia [Unknown]
  - Hepatic steatosis [Unknown]
  - Lymphadenopathy mediastinal [Unknown]
  - Intestinal resection [Unknown]
  - Orchitis noninfective [Unknown]
  - Hernia [Unknown]
  - Oedema peripheral [Recovered/Resolved]
  - Back pain [Not Recovered/Not Resolved]
  - Pleural effusion [Not Recovered/Not Resolved]
  - Pulmonary resection [Unknown]
  - Respiratory failure [Recovering/Resolving]
  - Umbilical hernia repair [Unknown]
  - Bone pain [Unknown]
  - Atelectasis [Unknown]
  - Appendicectomy [Unknown]
  - Hyperlipidaemia [Unknown]
  - Death [Fatal]
  - Cellulitis staphylococcal [Recovering/Resolving]
  - Radiotherapy [Unknown]
  - Thrombocytopenia [Unknown]
  - Infection [Unknown]
  - Pulmonary mass [Unknown]
  - Hypoglycaemia [Unknown]
  - Gastroenteritis [Recovering/Resolving]
  - Chronic kidney disease [Not Recovered/Not Resolved]
  - Testicular operation [Unknown]
  - Dysuria [Unknown]
  - Dyspnoea [Recovering/Resolving]
  - Diabetic neuropathy [Unknown]
  - Gastrostomy [Unknown]
  - Spinal osteoarthritis [Unknown]
  - Pneumobilia [Unknown]
  - Pleural thickening [Unknown]
  - Bile duct stone [Unknown]
  - Anaemia postoperative [Unknown]
  - Pancreatic carcinoma metastatic [Unknown]
  - Pancreaticoduodenectomy [Unknown]
  - Cholecystectomy [Unknown]
  - Hypertension [Unknown]
  - Gallbladder disorder [Unknown]
  - Neutropenia [Unknown]
  - Renal disorder [Unknown]
  - Leukocytosis [Recovering/Resolving]
  - Oedema peripheral [Unknown]
  - Pancreatitis chronic [Not Recovered/Not Resolved]
  - Pulmonary fibrosis [Unknown]
  - Thyroid disorder [Unknown]
  - Hyperglycaemia [Unknown]
  - Dumping syndrome [Unknown]
  - Pain in jaw [Unknown]
  - Tonsillectomy [Unknown]
  - Pleural effusion [Unknown]
  - Haemothorax [Unknown]
  - Thrombocytopenia [Unknown]

NARRATIVE: CASE EVENT DATE: 200904
